FAERS Safety Report 7351332-9 (Version None)
Quarter: 2011Q1

REPORT INFORMATION
  Report Type: 
  Country: None (occurrence: None)
  Receive Date: 20110304
  Receipt Date: 20110225
  Transmission Date: 20110831
  Serious: Yes (Other)
  Sender: FDA-Public Use
  Company Number: CIP11000456

PATIENT
  Age: 77 Year
  Sex: Female

DRUGS (11)
  1. RHINOCORT (BECLOMETASONE DIPROPIONATE) [Concomitant]
  2. CENTRUM SILVER (ASCORBIC ACID, CALCIUM, MINERALS NOS, RETINOL, TOCOPHE [Concomitant]
  3. FEXOFENADINE HCL [Concomitant]
  4. SINGULAIR [Concomitant]
  5. CLARITIN [Concomitant]
  6. FLOVENT [Concomitant]
  7. PRILOSEC (OMEPRAZOLE) [Concomitant]
  8. ACTONEL [Suspect]
     Dosage: 35 MG ONCE WEEKLY, ORAL
     Route: 048
  9. ASPIRIN [Concomitant]
  10. VITAMIN D [Concomitant]
  11. CALTRATE (CALCIUM CARBONATE) [Concomitant]

REACTIONS (1)
  - LUNG NEOPLASM MALIGNANT [None]
